FAERS Safety Report 5195725-7 (Version None)
Quarter: 2007Q1

REPORT INFORMATION
  Report Type: 
  Country: None (occurrence: None)
  Receive Date: 20070102
  Receipt Date: 20061221
  Transmission Date: 20070707
  Serious: Yes (Hospitalization)
  Sender: FDA-Public Use
  Company Number: GB-ROCHE-462718

PATIENT
  Age: 59 Year
  Sex: Female
  Weight: 92.1 kg

DRUGS (4)
  1. XENICAL [Suspect]
     Indication: OBESITY
     Route: 048
     Dates: start: 20060711, end: 20060717
  2. AMITRIPTYLINE HCL [Concomitant]
     Indication: OSTEOARTHRITIS
     Route: 048
  3. FEXOFENADINE [Concomitant]
     Indication: RHINITIS
     Route: 048
  4. TRAMADOL HCL [Concomitant]
     Indication: OSTEOARTHRITIS
     Route: 048

REACTIONS (1)
  - PANCREATITIS [None]
